FAERS Safety Report 17358266 (Version 1)
Quarter: 2020Q1

REPORT INFORMATION
  Report Type: Spontaneous
  Country: ES (occurrence: ES)
  Receive Date: 20200201
  Receipt Date: 20200201
  Transmission Date: 20200409
  Serious: Yes (Hospitalization, Other)
  Sender: FDA-Public Use
  Company Number: ES-SUN PHARMACEUTICAL INDUSTRIES LTD-2019R1-219931

PATIENT
  Age: 40 Year
  Sex: Female

DRUGS (3)
  1. MISOPROSTOL. [Suspect]
     Active Substance: MISOPROSTOL
     Indication: ABORTION INCOMPLETE
     Dosage: 400 MICROGRAM, QD
     Route: 067
  2. PARACETAMOL [Suspect]
     Active Substance: ACETAMINOPHEN
     Indication: ANALGESIC THERAPY
     Dosage: 500 MILLIGRAM, ASNECESSARY 2
     Route: 048
  3. IBUPROFEN. [Suspect]
     Active Substance: IBUPROFEN
     Indication: ANALGESIC THERAPY
     Dosage: 400 MILLIGRAM, ASNECESSARY 2
     Route: 048

REACTIONS (4)
  - Product use in unapproved indication [Unknown]
  - Arteriospasm coronary [Unknown]
  - Off label use [Unknown]
  - Acute coronary syndrome [Recovered/Resolved]
